FAERS Safety Report 10777122 (Version 4)
Quarter: 2015Q1

REPORT INFORMATION
  Report Type: Spontaneous
  Country: CL (occurrence: CL)
  Receive Date: 20150209
  Receipt Date: 20150327
  Transmission Date: 20150721
  Serious: Yes (Other)
  Sender: FDA-Public Use
  Company Number: PHHY2015CL014949

PATIENT
  Age: 67 Year
  Sex: Female

DRUGS (1)
  1. TAREG D [Suspect]
     Active Substance: HYDROCHLOROTHIAZIDE\VALSARTAN
     Indication: PRODUCT USED FOR UNKNOWN INDICATION
     Route: 048
     Dates: start: 1995, end: 201501

REACTIONS (1)
  - Plasma cell myeloma [Not Recovered/Not Resolved]
